FAERS Safety Report 15730545 (Version 3)
Quarter: 2019Q3

REPORT INFORMATION
  Report Type: Spontaneous
  Country: US (occurrence: US)
  Receive Date: 20181217
  Receipt Date: 20190906
  Transmission Date: 20191004
  Serious: Yes (Other)
  Sender: FDA-Public Use
  Company Number: US-SA-2018SA339003

PATIENT
  Age: 50 Year
  Sex: Female
  Weight: 115.6 kg

DRUGS (14)
  1. TAXOTERE [Suspect]
     Active Substance: DOCETAXEL
     Indication: BREAST CANCER FEMALE
     Dosage: 150 MG, UNK
     Route: 042
     Dates: start: 20061205, end: 20061205
  2. ADRIAMYCIN [Concomitant]
     Active Substance: DOXORUBICIN HYDROCHLORIDE
     Indication: BREAST CANCER FEMALE
     Dosage: UNK
     Route: 065
  3. LIPITOR [Concomitant]
     Active Substance: ATORVASTATIN CALCIUM
     Dosage: UNK
  4. PERCOCET [OXYCODONE HYDROCHLORIDE;OXYCODONE TEREPHTHALATE;PARACETAMOL] [Concomitant]
     Active Substance: ACETAMINOPHEN\OXYCODONE HYDROCHLORIDE\OXYCODONE TEREPHTHALATE
     Route: 065
  5. MOTRIN [NAPROXEN] [Concomitant]
     Active Substance: NAPROXEN
     Dosage: UNK
     Route: 065
     Dates: start: 1980
  6. NEOSAR [Concomitant]
     Active Substance: CYCLOPHOSPHAMIDE
     Route: 065
  7. ALEVE [Concomitant]
     Active Substance: NAPROXEN SODIUM
     Dosage: UNK
     Route: 065
     Dates: start: 1999, end: 2006
  8. TAXOL [Concomitant]
     Active Substance: PACLITAXEL
     Route: 065
  9. VITAMIN D [VITAMIN D NOS] [Concomitant]
     Active Substance: VITAMIN D NOS
  10. PLAVIX [Concomitant]
     Active Substance: CLOPIDOGREL BISULFATE
     Dosage: UNK UNK, UNK
     Route: 065
  11. TAXOTERE [Suspect]
     Active Substance: DOCETAXEL
     Dosage: 150 MG, UNK
     Route: 042
     Dates: start: 20061219, end: 20061219
  12. NAPROSYN [Concomitant]
     Active Substance: NAPROXEN
  13. DOXORUBICIN [Concomitant]
     Active Substance: DOXORUBICIN
     Dosage: UNK UNK, UNK
     Route: 065
  14. CYTOXAN [Concomitant]
     Active Substance: CYCLOPHOSPHAMIDE
     Indication: BREAST CANCER FEMALE
     Dosage: UNK UNK, UNK

REACTIONS (2)
  - Alopecia [Recovering/Resolving]
  - Psychological trauma [Unknown]

NARRATIVE: CASE EVENT DATE: 20070619
